FAERS Safety Report 19999901 (Version 1)
Quarter: 2021Q4

REPORT INFORMATION
  Report Type: Spontaneous
  Country: IT (occurrence: IT)
  Receive Date: 20211027
  Receipt Date: 20211027
  Transmission Date: 20220303
  Serious: Yes (Other)
  Sender: FDA-Public Use
  Company Number: IT-MLMSERVICE-20211011-3153259-1

PATIENT
  Age: 37 Year
  Sex: Male

DRUGS (5)
  1. SERTRALINE [Suspect]
     Active Substance: SERTRALINE HYDROCHLORIDE
     Indication: Bipolar disorder
  2. BUPROPION [Suspect]
     Active Substance: BUPROPION
     Indication: Obsessive-compulsive disorder
  3. DELORAZEPAM [Suspect]
     Active Substance: DELORAZEPAM
     Indication: Obsessive-compulsive disorder
     Dates: end: 201805
  4. TRAZODONE [Suspect]
     Active Substance: TRAZODONE HYDROCHLORIDE
     Indication: Obsessive-compulsive disorder
  5. LAMOTRIGINE [Suspect]
     Active Substance: LAMOTRIGINE
     Indication: Obsessive-compulsive disorder

REACTIONS (5)
  - Loss of personal independence in daily activities [Recovered/Resolved]
  - Sexual dysfunction [Recovered/Resolved]
  - Suicidal ideation [Recovered/Resolved]
  - Agoraphobia [Recovered/Resolved]
  - Anxiety [Recovered/Resolved]

NARRATIVE: CASE EVENT DATE: 20150301
